FAERS Safety Report 24217851 (Version 1)
Quarter: 2024Q3

REPORT INFORMATION
  Report Type: Spontaneous
  Country: HK (occurrence: HK)
  Receive Date: 20240816
  Receipt Date: 20240816
  Transmission Date: 20241017
  Serious: Yes (Other)
  Sender: GLAXOSMITHKLINE
  Company Number: HK-GLAXOSMITHKLINE-HK2024APC099885

PATIENT

DRUGS (1)
  1. NUCALA [Suspect]
     Active Substance: MEPOLIZUMAB
     Indication: Product used for unknown indication
     Dosage: 300 UG

REACTIONS (2)
  - Hypereosinophilic syndrome [Unknown]
  - Pemphigoid [Unknown]
